FAERS Safety Report 7059735-7 (Version None)
Quarter: 2010Q4

REPORT INFORMATION
  Report Type: 
  Country: None (occurrence: None)
  Receive Date: 20101025
  Receipt Date: 20101019
  Transmission Date: 20110411
  Serious: Yes (Hospitalization, Other)
  Sender: FDA-Public Use
  Company Number: JP-BAYER-201012239BYL

PATIENT
  Age: 56 Year
  Sex: Male
  Weight: 52 kg

DRUGS (13)
  1. NEXAVAR [Suspect]
     Indication: HEPATIC NEOPLASM MALIGNANT
     Dosage: TOTAL DAILY DOSE: 400 MG  UNIT DOSE: 200 MG
     Route: 048
     Dates: start: 20100413, end: 20100415
  2. NEXAVAR [Suspect]
     Dosage: TOTAL DAILY DOSE: 800 MG  UNIT DOSE: 200 MG
     Route: 048
     Dates: start: 20100416, end: 20100418
  3. NEXAVAR [Suspect]
     Dosage: UNIT DOSE: 200 MG
     Route: 048
     Dates: start: 20100419, end: 20100419
  4. LOXONIN [Concomitant]
     Indication: CANCER PAIN
     Dosage: UNIT DOSE: 60 MG
     Route: 048
     Dates: start: 20100128, end: 20100419
  5. OMEPRAL [Concomitant]
     Indication: GASTRITIS
     Dosage: UNIT DOSE: 10 MG
     Route: 048
     Dates: start: 20100128, end: 20100428
  6. BARACLUDE [Concomitant]
     Indication: HEPATITIS B
     Dosage: UNIT DOSE: 0.5 MG
     Route: 048
     Dates: start: 20100128
  7. OXYCONTIN [Concomitant]
     Indication: CANCER PAIN
     Dosage: UNIT DOSE: 5 MG
     Route: 048
     Dates: start: 20100110, end: 20100419
  8. MAGMITT [Concomitant]
     Indication: CONSTIPATION
     Dosage: UNIT DOSE: 330 MG
     Route: 048
     Dates: start: 20100207, end: 20100420
  9. LIVACT [Concomitant]
     Indication: HYPOALBUMINAEMIA
     Dosage: UNIT DOSE: 4.15 G
     Route: 048
     Dates: start: 20100413, end: 20100422
  10. URSO 250 [Concomitant]
     Indication: CHRONIC HEPATITIS
     Dosage: UNIT DOSE: 100 MG
     Route: 048
     Dates: start: 20100413, end: 20100422
  11. FAMOSTAGINE-D [Concomitant]
     Dosage: UNIT DOSE: 10 MG
     Route: 048
     Dates: end: 20100127
  12. MUCOSTA [Concomitant]
     Route: 048
     Dates: end: 20100127
  13. PANCREAZE [Concomitant]
     Route: 048
     Dates: end: 20100127

REACTIONS (3)
  - ALANINE AMINOTRANSFERASE INCREASED [None]
  - ASPARTATE AMINOTRANSFERASE INCREASED [None]
  - HEPATIC FUNCTION ABNORMAL [None]
